FAERS Safety Report 20600611 (Version 1)
Quarter: 2022Q1

REPORT INFORMATION
  Report Type: Spontaneous
  Country: US (occurrence: US)
  Receive Date: 20220316
  Receipt Date: 20220316
  Transmission Date: 20220424
  Serious: No
  Sender: FDA-Public Use
  Company Number: US-BAUSCH-BL-2022-006495

PATIENT
  Age: 63 Year
  Sex: Male

DRUGS (2)
  1. XIFAXAN [Suspect]
     Active Substance: RIFAXIMIN
     Indication: Irritable bowel syndrome
     Route: 048
  2. XIFAXAN [Suspect]
     Active Substance: RIFAXIMIN
     Indication: Abdominal pain upper
     Dosage: TAKING MEDICATION EVERY OTHER DAY
     Route: 048

REACTIONS (3)
  - Abdominal pain upper [Unknown]
  - Symptom recurrence [Unknown]
  - Intentional product misuse [Unknown]
